FAERS Safety Report 6010023-7 (Version None)
Quarter: 2008Q4

REPORT INFORMATION
  Report Type: 
  Country: None (occurrence: None)
  Receive Date: 20081218
  Receipt Date: 20081209
  Transmission Date: 20090506
  Serious: Yes (Hospitalization)
  Sender: FDA-Public Use
  Company Number: US-PFIZER INC-2008043794

PATIENT
  Sex: Female
  Weight: 142 kg

DRUGS (6)
  1. INHALED HUMAN INSULIN [Suspect]
     Indication: DIABETES MELLITUS
     Dosage: 10 MG, 1X/DAY
     Route: 055
     Dates: start: 20070928
  2. LANTUS [Concomitant]
     Route: 058
     Dates: start: 20061025
  3. GLIPIZIDE [Concomitant]
     Route: 048
     Dates: start: 20000313
  4. LIPITOR [Concomitant]
     Route: 048
     Dates: start: 20040811
  5. TARKA [Concomitant]
     Route: 048
     Dates: start: 20060703
  6. METFORMIN HCL [Concomitant]
     Route: 048
     Dates: start: 20001211

REACTIONS (1)
  - STAPHYLOCOCCAL INFECTION [None]
